FAERS Safety Report 24623931 (Version 1)
Quarter: 2024Q4

REPORT INFORMATION
  Report Type: Report from Study
  Country: US (occurrence: US)
  Receive Date: 20241115
  Receipt Date: 20241115
  Transmission Date: 20250115
  Serious: Yes (Hospitalization, Other)
  Sender: BAYER HEALTHCARE PHARMACEUTICALS INC.
  Company Number: US-BAYER-2024A126405

PATIENT
  Age: 49 Year
  Sex: Female
  Weight: 122.45 kg

DRUGS (23)
  1. ADEMPAS [Suspect]
     Active Substance: RIOCIGUAT
     Indication: Pulmonary arterial hypertension
     Dosage: UNK
     Dates: start: 20240215
  2. ADEMPAS [Suspect]
     Active Substance: RIOCIGUAT
     Indication: Pulmonary arterial hypertension
     Dosage: 2.5 MG, TID
     Route: 048
  3. ADEMPAS [Suspect]
     Active Substance: RIOCIGUAT
     Indication: Pulmonary arterial hypertension
     Dosage: 2.5 MG, TID
     Route: 048
  4. ADEMPAS [Suspect]
     Active Substance: RIOCIGUAT
     Indication: Pulmonary arterial hypertension
     Dosage: 2.5 MG, TID
     Route: 048
  5. OMEPRAZOLE [Concomitant]
     Active Substance: OMEPRAZOLE
  6. VITAMIN D3 [Concomitant]
     Active Substance: CHOLECALCIFEROL
  7. FAMOTIDINE [Concomitant]
     Active Substance: FAMOTIDINE
  8. POTASSIUM CHLORIDE [Concomitant]
     Active Substance: POTASSIUM CHLORIDE
  9. OXYCODONE HYDROCHLORIDE [Concomitant]
     Active Substance: OXYCODONE HYDROCHLORIDE
  10. TYLENOL EXTRA STRENGTH [Concomitant]
     Active Substance: ACETAMINOPHEN
  11. ATENOLOL [Concomitant]
     Active Substance: ATENOLOL
  12. LEVOTHYROXINE SODIUM [Concomitant]
     Active Substance: LEVOTHYROXINE SODIUM
  13. COMPAZINE [Concomitant]
     Active Substance: PROCHLORPERAZINE MALEATE
  14. ESTRADIOL [Concomitant]
     Active Substance: ESTRADIOL
  15. OPSUMIT [Concomitant]
     Active Substance: MACITENTAN
  16. BENZONATATE [Concomitant]
     Active Substance: BENZONATATE
  17. MUCINEX [Concomitant]
     Active Substance: GUAIFENESIN
  18. SPIRONOLACTONE [Concomitant]
     Active Substance: SPIRONOLACTONE
  19. VENTOLIN HFA [Concomitant]
     Active Substance: ALBUTEROL SULFATE
  20. FUROSEMIDE [Concomitant]
     Active Substance: FUROSEMIDE
  21. IBUPROFEN [Concomitant]
     Active Substance: IBUPROFEN
  22. MODERNA COVID-19 VACCINE [Concomitant]
     Active Substance: ELASOMERAN
  23. ZOFRAN [Concomitant]
     Active Substance: ONDANSETRON HYDROCHLORIDE

REACTIONS (16)
  - Small intestinal obstruction [Recovering/Resolving]
  - Feeding disorder [None]
  - Presyncope [None]
  - Gastrointestinal disorder [Not Recovered/Not Resolved]
  - Haematemesis [None]
  - Mood altered [None]
  - Food refusal [None]
  - Abdominal pain upper [None]
  - Inflammation [None]
  - Feeling abnormal [None]
  - Nausea [Not Recovered/Not Resolved]
  - Vomiting [None]
  - Dyspnoea [None]
  - Dehydration [None]
  - Headache [Recovered/Resolved]
  - Dizziness [Recovered/Resolved]

NARRATIVE: CASE EVENT DATE: 20240101
